FAERS Safety Report 5095100-X (Version None)
Quarter: 2006Q3

REPORT INFORMATION
  Report Type: 
  Country: None (occurrence: None)
  Receive Date: 20060830
  Receipt Date: 20060816
  Transmission Date: 20061208
  Serious: Yes (Death)
  Sender: FDA-Public Use
  Company Number: 007819

PATIENT
  Age: 21 Year
  Sex: Female
  Weight: 56.7 kg

DRUGS (11)
  1. PLAN B [Suspect]
     Indication: POST COITAL CONTRACEPTION
     Dosage: 2 TABLET, SINGLE, ORAL
     Route: 048
     Dates: start: 20060210, end: 20060210
  2. PLAN B [Suspect]
     Indication: POST COITAL CONTRACEPTION
     Dosage: 2 TABLET, SINGLE, ORAL
     Route: 048
     Dates: start: 20060327, end: 20060327
  3. PLAN B [Suspect]
  4. ORTHO TRI-CYCLEN LO [Suspect]
     Indication: ORAL CONTRACEPTION
     Dosage: ORAL
     Route: 048
     Dates: start: 20050531
  5. ORAL CONTRACEPTIVE NOS (ORAL CONTRACEPTIVE NOS) [Concomitant]
  6. TYLENOL COLD MEDICATION (CHLORPHENAMINE MALEATE, PSEUDOEPHEDRINE HYDRO [Concomitant]
  7. AMPHETAMINE [Concomitant]
  8. VITAMINS [Concomitant]
  9. VALTREX [Concomitant]
  10. CIPRO [Concomitant]
  11. SULFAMETHOXAZOLE + TRIMETHOPRIM [Concomitant]

REACTIONS (11)
  - ABDOMINAL DISTENSION [None]
  - ARRHYTHMIA [None]
  - DYSURIA [None]
  - HAEMATURIA [None]
  - INFLUENZA [None]
  - MENORRHAGIA [None]
  - METRORRHAGIA [None]
  - PELVIC INFLAMMATORY DISEASE [None]
  - PELVIC PAIN [None]
  - SELF-MEDICATION [None]
  - URINARY TRACT INFECTION [None]
